FAERS Safety Report 5830668-4 (Version None)
Quarter: 2008Q3

REPORT INFORMATION
  Report Type: 
  Country: None (occurrence: None)
  Receive Date: 20080801
  Receipt Date: 20070928
  Transmission Date: 20090109
  Serious: No
  Sender: FDA-Public Use
  Company Number: US-BRISTOL-MYERS SQUIBB COMPANY-13923073

PATIENT
  Age: 81 Year
  Sex: Female
  Weight: 75 kg

DRUGS (11)
  1. COUMADIN [Suspect]
     Indication: ATRIAL FIBRILLATION
     Dosage: 5 MG AND 2.5 MG ON ALTERNATING DAYS FOR 1 WEEK, AT NIGHT.
     Route: 048
  2. ZOCOR [Concomitant]
  3. NORVASC [Concomitant]
  4. PEPCID [Concomitant]
  5. SINGULAIR [Concomitant]
  6. TENORMIN [Concomitant]
  7. COMBIVENT [Concomitant]
  8. K-TAB [Concomitant]
  9. SYNTHROID [Concomitant]
  10. COLACE [Concomitant]
  11. LODINE [Concomitant]

REACTIONS (3)
  - BLADDER PAIN [None]
  - NOCTURIA [None]
  - VULVOVAGINAL BURNING SENSATION [None]
